FAERS Safety Report 21243424 (Version 2)
Quarter: 2022Q3

REPORT INFORMATION
  Report Type: Report from Study
  Country: FR (occurrence: FR)
  Receive Date: 20220823
  Receipt Date: 20220912
  Transmission Date: 20221026
  Serious: Yes (Death, Hospitalization, Other)
  Sender: FDA-Public Use
  Company Number: FR-NOVARTISPH-NVSC2022FR187397

PATIENT
  Weight: 74 kg

DRUGS (1)
  1. PLUVICTO [Suspect]
     Active Substance: LUTETIUM LU-177 VIPIVOTIDE TETRAXETAN
     Indication: Prostate cancer
     Dosage: 7485 MBQ
     Route: 065
     Dates: start: 20220719, end: 20220719

REACTIONS (7)
  - Renal colic [Fatal]
  - Renal failure [Fatal]
  - Respiratory failure [Fatal]
  - Pleural effusion [Fatal]
  - Ureterolithiasis [Fatal]
  - Thrombocytopenia [Unknown]
  - Anaemia [Unknown]
